FAERS Safety Report 17006847 (Version 1)
Quarter: 2019Q4

REPORT INFORMATION
  Report Type: Spontaneous
  Country: US (occurrence: US)
  Receive Date: 20191106
  Receipt Date: 20191106
  Transmission Date: 20200122
  Serious: Yes (Hospitalization)
  Sender: FDA-Public Use
  Company Number: None

PATIENT
  Age: 80 Year
  Sex: Female

DRUGS (1)
  1. CYCLOPHOSPHOMIDE [Suspect]
     Active Substance: CYCLOPHOSPHAMIDE
     Indication: NEOPLASM MALIGNANT
     Dosage: ?          OTHER FREQUENCY:DAYS 1-14;?
     Route: 048
     Dates: start: 20190723, end: 20190923

REACTIONS (5)
  - Fall [None]
  - Spinal fracture [None]
  - Diarrhoea [None]
  - Amnesia [None]
  - Vomiting [None]

NARRATIVE: CASE EVENT DATE: 20190923
